FAERS Safety Report 7482472-1 (Version None)
Quarter: 2011Q2

REPORT INFORMATION
  Report Type: 
  Country: None (occurrence: None)
  Receive Date: 20110516
  Receipt Date: 20110503
  Transmission Date: 20111010
  Serious: Yes (Hospitalization)
  Sender: FDA-Public Use
  Company Number: US-B.I. PHARMACEUTICALS,INC./RIDGEFIELD-2011-BP-13096BP

PATIENT

DRUGS (2)
  1. MULTAQ [Concomitant]
     Dates: start: 20110428
  2. PRADAXA [Suspect]
     Route: 048
     Dates: start: 20110428

REACTIONS (1)
  - CARDIAC FAILURE CONGESTIVE [None]
